FAERS Safety Report 8765627 (Version 1)
Quarter: 2012Q4

REPORT INFORMATION
  Report Type: 
  Country: US (occurrence: US)
  Receive Date: 20120903
  Receipt Date: 20120903
  Transmission Date: 20130627
  Serious: Yes (Other)
  Sender: FDA-Public Use
  Company Number: PHEH2012US017049

PATIENT
  Sex: Male

DRUGS (1)
  1. DIOVAN [Suspect]
     Dosage: 160 mg, UNK

REACTIONS (5)
  - Gangrene [Unknown]
  - Skin discolouration [Unknown]
  - Injury [Unknown]
  - Protein C deficiency [Unknown]
  - Pain [Unknown]
